FAERS Safety Report 10752897 (Version 2)
Quarter: 2015Q1

REPORT INFORMATION
  Report Type: Report from Study
  Country: MX (occurrence: MX)
  Receive Date: 20150130
  Receipt Date: 20150202
  Transmission Date: 20150721
  Serious: Yes (Other)
  Sender: FDA-Public Use
  Company Number: PHHY2015MX011213

PATIENT
  Age: 57 Year
  Sex: Male

DRUGS (3)
  1. ONBREZ BREEZHALER [Suspect]
     Active Substance: INDACATEROL
     Indication: LUNG DISORDER
     Dosage: 150 UG, QD
     Route: 065
     Dates: start: 201104
  2. GLIBENCLAMIDE [Concomitant]
     Active Substance: GLYBURIDE
     Indication: DIABETES MELLITUS
     Dosage: UNK
     Route: 065
  3. METFORMIN [Concomitant]
     Active Substance: METFORMIN HYDROCHLORIDE
     Indication: DIABETES MELLITUS
     Dosage: 850 OT, QD (IN THE AFTERNOON)
     Route: 065

REACTIONS (6)
  - Chronic obstructive pulmonary disease [Not Recovered/Not Resolved]
  - Blood glucose decreased [Unknown]
  - Respiratory disorder [Recovering/Resolving]
  - Product use issue [Unknown]
  - Blood pressure increased [Recovered/Resolved]
  - Vasodilatation [Unknown]

NARRATIVE: CASE EVENT DATE: 201104
